FAERS Safety Report 10179814 (Version 1)
Quarter: 2014Q2

REPORT INFORMATION
  Report Type: Spontaneous
  Country: US (occurrence: US)
  Receive Date: 20140519
  Receipt Date: 20140519
  Transmission Date: 20141212
  Serious: No
  Sender: FDA-Public Use
  Company Number: US-AMGEN INC.-USASP2013070756

PATIENT
  Age: 68 Year
  Sex: Female

DRUGS (4)
  1. PROLIA [Suspect]
     Indication: OSTEOPOROSIS POSTMENOPAUSAL
     Route: 065
  2. SYNTHROID [Concomitant]
     Dosage: 6 PILLS A WEEK
  3. CALCIUM [Concomitant]
  4. VITAMIN D                          /00107901/ [Concomitant]

REACTIONS (4)
  - Pain [Unknown]
  - Limb discomfort [Unknown]
  - Arthralgia [Unknown]
  - Pain in extremity [Unknown]
